FAERS Safety Report 8205994-4 (Version None)
Quarter: 2012Q1

REPORT INFORMATION
  Report Type: 
  Country: None (occurrence: None)
  Receive Date: 20120313
  Receipt Date: 20120305
  Transmission Date: 20120608
  Serious: Yes (Hospitalization)
  Sender: FDA-Public Use
  Company Number: US-JNJFOC-20110905316

PATIENT
  Sex: Female
  Weight: 25.1 kg

DRUGS (4)
  1. TYLENOL [Suspect]
     Indication: PYREXIA
     Route: 065
  2. NYQUIL [Suspect]
     Indication: PYREXIA
     Dates: start: 20100204
  3. TYLENOL [Suspect]
     Route: 065
  4. MOTRIN [Suspect]
     Indication: PYREXIA

REACTIONS (1)
  - TOXIC EPIDERMAL NECROLYSIS [None]
